FAERS Safety Report 9715317 (Version 2)
Quarter: 2014Q1

REPORT INFORMATION
  Report Type: Spontaneous
  Country: US (occurrence: US)
  Receive Date: 20131127
  Receipt Date: 20140313
  Transmission Date: 20141002
  Serious: No
  Sender: FDA-Public Use
  Company Number: US-009507513-1310USA004414

PATIENT
  Age: 70 Year
  Sex: Male
  Weight: 96.6 kg

DRUGS (11)
  1. CLARITIN [Suspect]
     Indication: HYPERSENSITIVITY
     Dosage: 10 MG, QD
     Route: 048
     Dates: start: 20130930, end: 20131001
  2. CLARITIN [Suspect]
     Indication: SINUSITIS
     Dosage: 10 MG, QD
     Route: 048
     Dates: start: 20130930, end: 20131001
  3. CLARITIN [Suspect]
     Indication: EYE PRURITUS
  4. LYRICA [Suspect]
     Indication: SPINAL COLUMN STENOSIS
     Dosage: UNK, QPM
     Route: 048
  5. PERCOCET [Suspect]
     Indication: PRODUCT USED FOR UNKNOWN INDICATION
     Dosage: UNK, UNKNOWN
     Route: 048
  6. TRAMADOL HYDROCHLORIDE [Concomitant]
     Indication: SPINAL COLUMN STENOSIS
     Dosage: UNK, UNKNOWN
  7. LIPITOR [Concomitant]
     Indication: BLOOD CHOLESTEROL INCREASED
     Dosage: 10 MG, UNKNOWN
  8. FLOMAX (MORNIFLUMATE) [Concomitant]
     Indication: PROSTATOMEGALY
     Dosage: UNK, UNKNOWN
  9. AVODART [Concomitant]
     Indication: PROSTATOMEGALY
     Dosage: UNK, UNKNOWN
  10. LEVOTHYROXINE SODIUM [Concomitant]
     Indication: THYROID DISORDER
     Dosage: UNK, UNKNOWN
  11. ASPIRIN [Concomitant]
     Indication: CARDIOVASCULAR EVENT PROPHYLAXIS
     Dosage: 81 MG, UNKNOWN

REACTIONS (2)
  - Insomnia [Recovered/Resolved]
  - Drug effect decreased [Unknown]
